FAERS Safety Report 6898781-0 (Version None)
Quarter: 2010Q3

REPORT INFORMATION
  Report Type: 
  Country: None (occurrence: None)
  Receive Date: 20100802
  Receipt Date: 20071127
  Transmission Date: 20110219
  Serious: Yes (Other)
  Sender: FDA-Public Use
  Company Number: US-PFIZER INC-2007073376

PATIENT
  Sex: Male
  Weight: 99.8 kg

DRUGS (3)
  1. LYRICA [Suspect]
     Indication: PAIN IN EXTREMITY
     Dates: start: 20050101
  2. VICODIN [Concomitant]
     Indication: PAIN
  3. MS CONTIN [Concomitant]
     Indication: PAIN

REACTIONS (10)
  - ASTHENIA [None]
  - CHILLS [None]
  - COLD SWEAT [None]
  - DYSURIA [None]
  - FEELING ABNORMAL [None]
  - HEADACHE [None]
  - HYPERHIDROSIS [None]
  - LOSS OF CONSCIOUSNESS [None]
  - NAUSEA [None]
  - PRURITUS [None]
